FAERS Safety Report 5498142-5 (Version None)
Quarter: 2007Q4

REPORT INFORMATION
  Report Type: 
  Country: None (occurrence: None)
  Receive Date: 20071025
  Receipt Date: 20071005
  Transmission Date: 20080405
  Serious: No
  Sender: FDA-Public Use
  Company Number: US-BOEHRINGER INGELHEIM PHARMACEUTICALS, INC.-2007-BP-22467BP

PATIENT
  Sex: Male

DRUGS (1)
  1. MIRAPEX [Suspect]
     Indication: RESTLESS LEGS SYNDROME

REACTIONS (6)
  - CONDITION AGGRAVATED [None]
  - DRUG INEFFECTIVE [None]
  - LIMB DISCOMFORT [None]
  - MOOD DISORDER DUE TO A GENERAL MEDICAL CONDITION [None]
  - RESTLESSNESS [None]
  - SLEEP DISORDER [None]
